FAERS Safety Report 9216434 (Version 1)
Quarter: 2013Q2

REPORT INFORMATION
  Report Type: Spontaneous
  Country: IT (occurrence: None)
  Receive Date: 20130402
  Receipt Date: 20130402
  Transmission Date: 20140414
  Serious: Yes (Other)
  Sender: FDA-Public Use
  Company Number: AUR-APL-2013-02658

PATIENT
  Age: 77 Year
  Sex: Female

DRUGS (3)
  1. AMOXICILLIN (AMOXICILLIN) [Suspect]
     Indication: PRODUCT USED FOR UNKNOWN INDICATION
     Dosage: (2 GM, 1 D), ORAL
     Route: 048
     Dates: start: 20130215, end: 20130222
  2. TAVOR (LORAZEPAM) [Concomitant]
  3. TRITTICO (TRAZODONE) [Concomitant]

REACTIONS (3)
  - Dysentery [None]
  - Pruritus [None]
  - Urticaria [None]
